FAERS Safety Report 6644001-1 (Version None)
Quarter: 2010Q1

REPORT INFORMATION
  Report Type: 
  Country: None (occurrence: None)
  Receive Date: 20100319
  Receipt Date: 20100319
  Transmission Date: 20100710
  Serious: Yes (Other)
  Sender: FDA-Public Use
  Company Number: None

PATIENT
  Age: 31 Year
  Sex: Male
  Weight: 102.0593 kg

DRUGS (2)
  1. EQUATE ACID REDUCER [Suspect]
     Indication: DYSPEPSIA
     Dosage: 3 TO 6 A DAY EVERY FEW DAYS FOR THE LAST YEAR
  2. EQUATE ACID REDUCER [Suspect]
     Indication: GASTROOESOPHAGEAL REFLUX DISEASE
     Dosage: 3 TO 6 A DAY EVERY FEW DAYS FOR THE LAST YEAR

REACTIONS (1)
  - DRUG SCREEN POSITIVE [None]
